FAERS Safety Report 7736517-1 (Version None)
Quarter: 2011Q3

REPORT INFORMATION
  Report Type: 
  Country: None (occurrence: None)
  Receive Date: 20110902
  Receipt Date: 20110824
  Transmission Date: 20111222
  Serious: Yes (Hospitalization, Other)
  Sender: FDA-Public Use
  Company Number: 2011MA012543

PATIENT
  Age: 75 Year
  Sex: Male

DRUGS (5)
  1. QUETIAPINE [Concomitant]
  2. CITALOPRAM HYDROBROMIDE [Suspect]
     Indication: DEMENTIA ALZHEIMER'S TYPE
     Dosage: 20 MG;QD
  3. DONEPEZIL HCL [Concomitant]
  4. CIMETIDINE [Suspect]
     Indication: GASTRODUODENAL ULCER
  5. TICLOPIDINE HCL [Concomitant]

REACTIONS (5)
  - CEREBRAL ATROPHY [None]
  - ELECTROCARDIOGRAM ABNORMAL [None]
  - TOXICITY TO VARIOUS AGENTS [None]
  - SEROTONIN SYNDROME [None]
  - BLOOD GLUCOSE INCREASED [None]
